FAERS Safety Report 18192591 (Version 4)
Quarter: 2020Q4

REPORT INFORMATION
  Report Type: Report from Study
  Country: US (occurrence: US)
  Receive Date: 20200825
  Receipt Date: 20201130
  Transmission Date: 20210113
  Serious: Yes (Other)
  Sender: FDA-Public Use
  Company Number: NVSC2020US229369

PATIENT
  Sex: Female

DRUGS (1)
  1. TRAVATAN Z [Suspect]
     Active Substance: TRAVOPROST
     Indication: PRODUCT USED FOR UNKNOWN INDICATION
     Dosage: UNK
     Route: 065

REACTIONS (14)
  - Diabetes mellitus [Unknown]
  - Ocular hypertension [Unknown]
  - Skin cancer [Unknown]
  - Blood cholesterol increased [Unknown]
  - Eye disorder [Unknown]
  - Dizziness [Unknown]
  - Deafness unilateral [Unknown]
  - Blindness transient [Unknown]
  - Blindness unilateral [Unknown]
  - Multiple sclerosis [Unknown]
  - Glaucoma [Unknown]
  - Blindness [Unknown]
  - Thyroid disorder [Unknown]
  - Sensory loss [Unknown]
